APPROVED DRUG PRODUCT: PROPOXYPHENE COMPOUND 65
Active Ingredient: ASPIRIN; CAFFEINE; PROPOXYPHENE HYDROCHLORIDE
Strength: 389MG;32.4MG;65MG
Dosage Form/Route: CAPSULE;ORAL
Application: A080044 | Product #002
Applicant: SANDOZ INC
Approved: Sep 16, 1983 | RLD: Yes | RS: No | Type: DISCN